FAERS Safety Report 21170797 (Version 1)
Quarter: 2022Q3

REPORT INFORMATION
  Report Type: Spontaneous
  Country: CA (occurrence: CA)
  Receive Date: 20220804
  Receipt Date: 20220804
  Transmission Date: 20221026
  Serious: Yes (Hospitalization, Other)
  Sender: FDA-Public Use
  Company Number: None

PATIENT
  Age: 6 Month
  Sex: Female
  Weight: 6 kg

DRUGS (2)
  1. BUPROPION [Interacting]
     Active Substance: BUPROPION
     Dosage: 1 EVERY 1 DAYS
     Route: 063
  2. ESCITALOPRAM [Interacting]
     Active Substance: ESCITALOPRAM OXALATE
     Dosage: 1 EVERY 1 DAYS
     Route: 063

REACTIONS (7)
  - Drug interaction [Unknown]
  - Exposure via breast milk [Unknown]
  - Seizure like phenomena [Recovered/Resolved]
  - Sleep disorder [Recovered/Resolved]
  - Vomiting [Recovered/Resolved]
  - Drug level increased [Unknown]
  - Tonic convulsion [Unknown]
